FAERS Safety Report 18894364 (Version 2)
Quarter: 2021Q1

REPORT INFORMATION
  Report Type: Spontaneous
  Country: US (occurrence: US)
  Receive Date: 20210215
  Receipt Date: 20210326
  Transmission Date: 20210420
  Serious: Yes (Death)
  Sender: FDA-Public Use
  Company Number: US-PFIZER INC-2020288211

PATIENT
  Age: 71 Year
  Sex: Female

DRUGS (2)
  1. RETACRIT [Suspect]
     Active Substance: EPOETIN ALFA-EPBX
     Dosage: 10,000 INTERNATIONAL UNITS, UNK
  2. RETACRIT [Suspect]
     Active Substance: EPOETIN ALFA-EPBX
     Dosage: 15,000 INTERNATIONAL UNITS, WEEKLY FOR 28 DAYS
     Route: 058
     Dates: start: 20200709

REACTIONS (1)
  - Death [Fatal]
